FAERS Safety Report 25660680 (Version 1)
Quarter: 2025Q3

REPORT INFORMATION
  Report Type: Spontaneous
  Country: US (occurrence: US)
  Receive Date: 20250808
  Receipt Date: 20250808
  Transmission Date: 20251020
  Serious: No
  Sender: ANI
  Company Number: US-ANIPHARMA-2024-US-064719

PATIENT
  Sex: Male
  Weight: 108.86 kg

DRUGS (11)
  1. CORTICOTROPIN [Suspect]
     Active Substance: CORTICOTROPIN
     Indication: Sarcoidosis
     Route: 058
     Dates: start: 20241123
  2. OLMESARTAN-AMLODIPINE HCTZ [Concomitant]
  3. AZATHIOPRINE [Concomitant]
     Active Substance: AZATHIOPRINE
  4. REPATHA [Concomitant]
     Active Substance: EVOLOCUMAB
  5. AMMONIUM LACTATE 12 % CREAM(GM) [Concomitant]
  6. XYZAL [Concomitant]
     Active Substance: LEVOCETIRIZINE DIHYDROCHLORIDE
  7. FISH OIL [Concomitant]
     Active Substance: FISH OIL
  8. VITAMIN D3 100000/G POWDER [Concomitant]
  9. FLONASE ALLERGY RELIEF [Concomitant]
     Active Substance: FLUTICASONE PROPIONATE
  10. ASPIRIN [Concomitant]
     Active Substance: ASPIRIN
  11. NEXIUM [Concomitant]
     Active Substance: ESOMEPRAZOLE MAGNESIUM

REACTIONS (1)
  - Nasal congestion [Unknown]
